FAERS Safety Report 7704286-7 (Version None)
Quarter: 2011Q3

REPORT INFORMATION
  Report Type: 
  Country: None (occurrence: None)
  Receive Date: 20110823
  Receipt Date: 20110816
  Transmission Date: 20111222
  Serious: Yes (Hospitalization, Other)
  Sender: FDA-Public Use
  Company Number: PHHY2011US58958

PATIENT
  Sex: Female

DRUGS (7)
  1. EXTAVIA [Suspect]
     Indication: MULTIPLE SCLEROSIS
     Dosage: 0.187 MG, QOD
     Route: 058
     Dates: start: 20110630
  2. NEURONTIN [Concomitant]
     Dosage: UNK UKN, UNK
  3. FERROUS SULFATE TAB [Concomitant]
     Dosage: UNK UKN, UNK
  4. TYLENOL-500 [Concomitant]
     Dosage: UNK UKN, UNK
  5. PREDNISONE TAB [Concomitant]
     Dosage: UNK UKN, UNK
     Route: 042
  6. EXTAVIA [Suspect]
     Dosage: 0.25 MG, QOD
     Route: 058
  7. STEROIDS NOS [Concomitant]
     Dosage: UNK UKN, UNK

REACTIONS (15)
  - DEHYDRATION [None]
  - VOMITING [None]
  - PARAESTHESIA [None]
  - HYPOKINESIA [None]
  - CHROMATURIA [None]
  - DIARRHOEA [None]
  - BALANCE DISORDER [None]
  - BURNING SENSATION [None]
  - SKIN EXFOLIATION [None]
  - DRY SKIN [None]
  - PYREXIA [None]
  - PAIN IN EXTREMITY [None]
  - DIZZINESS [None]
  - SALIVARY HYPERSECRETION [None]
  - MALAISE [None]
